APPROVED DRUG PRODUCT: NORGESTIMATE AND ETHINYL ESTRADIOL
Active Ingredient: ETHINYL ESTRADIOL; NORGESTIMATE
Strength: 0.035MG;0.25MG
Dosage Form/Route: TABLET;ORAL-28
Application: A201896 | Product #001
Applicant: MYLAN LABORATORIES LTD A VIATRIS CO
Approved: Jan 27, 2016 | RLD: No | RS: No | Type: DISCN